FAERS Safety Report 5948257-X (Version None)
Quarter: 2008Q4

REPORT INFORMATION
  Report Type: 
  Country: None (occurrence: None)
  Receive Date: 20081111
  Receipt Date: 20081103
  Transmission Date: 20090506
  Serious: Yes (Other)
  Sender: FDA-Public Use
  Company Number: IL-TEVA-179952ISR

PATIENT
  Age: 72 Hour
  Sex: Male

DRUGS (1)
  1. PAROXETINE HCL [Suspect]
     Route: 064

REACTIONS (1)
  - ELECTROCARDIOGRAM QT PROLONGED [None]
